FAERS Safety Report 22532019 (Version 1)
Quarter: 2023Q2

REPORT INFORMATION
  Report Type: Spontaneous
  Country: CH (occurrence: CH)
  Receive Date: 20230607
  Receipt Date: 20230607
  Transmission Date: 20230721
  Serious: Yes (Other)
  Sender: FDA-Public Use
  Company Number: CH-NAPPMUNDI-GBR-2023-0108218

PATIENT
  Age: 87 Year
  Sex: Male
  Weight: 72 kg

DRUGS (17)
  1. OXYCODONE HYDROCHLORIDE [Suspect]
     Active Substance: OXYCODONE HYDROCHLORIDE
     Indication: Analgesic therapy
     Dosage: IN TOTAL
     Route: 048
     Dates: start: 20230411, end: 20230411
  2. OXYCONTIN [Suspect]
     Active Substance: OXYCODONE HYDROCHLORIDE
     Indication: Analgesic therapy
     Dosage: UNK
     Route: 048
     Dates: start: 20230410, end: 20230413
  3. LEVOFLOXACIN [Suspect]
     Active Substance: LEVOFLOXACIN
     Indication: Pneumonia
     Dosage: IN TOTAL
     Route: 048
     Dates: start: 20230410, end: 20230410
  4. LEVOFLOXACIN [Suspect]
     Active Substance: LEVOFLOXACIN
     Indication: Pneumonia
     Dosage: UNK
     Route: 048
     Dates: start: 20230411, end: 20230412
  5. DAFALGAN [Suspect]
     Active Substance: ACETAMINOPHEN
     Indication: Analgesic therapy
     Dosage: UNK
     Dates: start: 20230411, end: 20230413
  6. METOPROLOL SUCCINATE [Concomitant]
     Active Substance: METOPROLOL SUCCINATE
     Indication: Hypertension
     Dosage: LONG TERM TREATMENT
     Route: 048
     Dates: end: 20230413
  7. TORSEMIDE [Concomitant]
     Active Substance: TORSEMIDE
     Indication: Hypertension
     Dosage: LONG TERM TREATMENT.
     Route: 048
     Dates: end: 20230413
  8. CRESTOR [Concomitant]
     Active Substance: ROSUVASTATIN CALCIUM
     Indication: Dyslipidaemia
     Dosage: LONG TERM TREATMENT
     Route: 048
     Dates: end: 20230412
  9. XARELTO [Concomitant]
     Active Substance: RIVAROXABAN
     Indication: Atrial fibrillation
     Dosage: LONG TERM TREATMENT
     Route: 048
     Dates: end: 20230412
  10. PANTOZOL [Concomitant]
     Active Substance: PANTOPRAZOLE SODIUM
     Indication: Gastrooesophageal reflux disease
     Dosage: LONG TERM TREATMENT
     Route: 048
     Dates: end: 20230413
  11. DAPAGLIFLOZIN [Concomitant]
     Active Substance: DAPAGLIFLOZIN
     Indication: Myocardial ischaemia
     Dosage: UNK
     Route: 048
     Dates: start: 20230403, end: 20230412
  12. ANORO ELLIPTA [Concomitant]
     Active Substance: UMECLIDINIUM BROMIDE\VILANTEROL TRIFENATATE
     Indication: Chronic obstructive pulmonary disease
     Dosage: (UMERCLIDINIUM 55 ?G AND VILANTEROL 22 ?G).LONG TERM TREATMENT
     Dates: end: 20230413
  13. CALCIUM\CHOLECALCIFEROL [Concomitant]
     Active Substance: CALCIUM\CHOLECALCIFEROL
     Indication: Product used for unknown indication
     Dosage: (CALCIUM 1000 MG ET VITAMINE D3 800 UI ). LONG TERM TREATMENT
     Route: 048
     Dates: end: 20230413
  14. PREDNISONE [Concomitant]
     Active Substance: PREDNISONE
     Indication: Organising pneumonia
     Dosage: UNK
     Route: 048
     Dates: start: 202301, end: 20230413
  15. BACTRIM [Concomitant]
     Active Substance: SULFAMETHOXAZOLE\TRIMETHOPRIM
     Indication: Antifungal prophylaxis
     Dosage: (TRIMETHOPRIM 160 MG/SULFAMETHOXAZOLE 800 MG) . 3 X /WEEK.
     Route: 048
     Dates: start: 202301, end: 20230413
  16. RAMIPRIL [Concomitant]
     Active Substance: RAMIPRIL
     Indication: Hypertension
     Dosage: LONG TERM TREATMENT
     Route: 048
     Dates: end: 20230413
  17. VENTOLIN [Concomitant]
     Active Substance: ALBUTEROL SULFATE
     Indication: Chronic obstructive pulmonary disease
     Dosage: IN RESERVE. LONG TERM TREATMENT.
     Dates: end: 20230413

REACTIONS (2)
  - Hepatic enzyme increased [Not Recovered/Not Resolved]
  - Hepatic function abnormal [Not Recovered/Not Resolved]

NARRATIVE: CASE EVENT DATE: 20230413
